FAERS Safety Report 5134253-1 (Version None)
Quarter: 2006Q4

REPORT INFORMATION
  Report Type: 
  Country: None (occurrence: None)
  Receive Date: 20061019
  Receipt Date: 20061016
  Transmission Date: 20070319
  Serious: Yes (Other)
  Sender: FDA-Public Use
  Company Number: IT-2006-030838

PATIENT
  Age: 67 Year
  Sex: Female

DRUGS (1)
  1. ULTRAVIST 370 [Suspect]
     Indication: COMPUTERISED TOMOGRAM
     Dosage: 1 DOSE, IV DRIP
     Route: 041
     Dates: start: 20060711, end: 20060711

REACTIONS (3)
  - ANAPHYLACTIC SHOCK [None]
  - HYPERTENSION [None]
  - INJECTION SITE PARAESTHESIA [None]
